FAERS Safety Report 8135550-8 (Version None)
Quarter: 2012Q1

REPORT INFORMATION
  Report Type: 
  Country: None (occurrence: None)
  Receive Date: 20120103
  Receipt Date: 20111111
  Transmission Date: 20120608
  Serious: No
  Sender: FDA-Public Use
  Company Number: AE-2011-003368

PATIENT
  Age: 58 Year
  Sex: Female
  Weight: 53.5244 kg

DRUGS (7)
  1. INCIVEK [Suspect]
     Dosage: 2250 MG 9750 MG, 1 IN 8 HR) ORAL
     Route: 048
     Dates: start: 20111106
  2. RIBAVIRIN [Concomitant]
  3. PEG-INTRON [Concomitant]
  4. AMITIZA [Concomitant]
  5. MORPHINE [Concomitant]
  6. DILAUDID [Concomitant]
  7. SINGULAIR [Concomitant]

REACTIONS (6)
  - DRUG DOSE OMISSION [None]
  - PAIN [None]
  - ANORECTAL DISCOMFORT [None]
  - INFLUENZA LIKE ILLNESS [None]
  - DYSURIA [None]
  - FATIGUE [None]
